FAERS Safety Report 17177591 (Version 1)
Quarter: 2019Q4

REPORT INFORMATION
  Report Type: Spontaneous
  Country: US (occurrence: US)
  Receive Date: 20191219
  Receipt Date: 20191219
  Transmission Date: 20200122
  Serious: No
  Sender: FDA-Public Use
  Company Number: US-COOPERSURGICAL, INC.-US-2019CPS003122

PATIENT
  Age: 52 Year
  Sex: Female
  Weight: 92.97 kg

DRUGS (3)
  1. PAXIL [Concomitant]
     Active Substance: PAROXETINE HYDROCHLORIDE
     Indication: DEPRESSION
     Dosage: UNK
     Route: 065
  2. PARAGARD T 380A [Suspect]
     Active Substance: COPPER
     Indication: CONTRACEPTION
     Dosage: UNK
     Route: 015
     Dates: start: 2013
  3. TRAMADOL. [Concomitant]
     Active Substance: TRAMADOL
     Indication: ANKLE FRACTURE
     Dosage: UNK
     Route: 065
     Dates: start: 2018

REACTIONS (7)
  - Nausea [Not Recovered/Not Resolved]
  - Ankle fracture [Recovered/Resolved]
  - Fatigue [Not Recovered/Not Resolved]
  - Pain [Not Recovered/Not Resolved]
  - Metrorrhagia [Recovered/Resolved]
  - Increased appetite [Not Recovered/Not Resolved]
  - Fall [Recovered/Resolved]

NARRATIVE: CASE EVENT DATE: 2018
